FAERS Safety Report 15210350 (Version 2)
Quarter: 2018Q3

REPORT INFORMATION
  Report Type: Spontaneous
  Country: IT (occurrence: IT)
  Receive Date: 20180727
  Receipt Date: 20180906
  Transmission Date: 20181010
  Serious: Yes (Other)
  Sender: FDA-Public Use
  Company Number: IT-009507513-1807ITA011109

PATIENT
  Age: 58 Year
  Sex: Male

DRUGS (22)
  1. VANCOMYCIN [Suspect]
     Active Substance: VANCOMYCIN
     Indication: ANTIBIOTIC THERAPY
     Dosage: 500 MG TWICE DAILY
     Dates: start: 2017, end: 2017
  2. KANRENOL [Concomitant]
     Active Substance: CANRENOATE POTASSIUM
     Dosage: ACCORDING TO RENAL FUNCTION AND CARDIOCIRCULATORY COMPENSATION
  3. VANCOMYCIN [Suspect]
     Active Substance: VANCOMYCIN
     Dosage: UNK
     Dates: start: 2017, end: 2017
  4. RIFAXIMIN. [Concomitant]
     Active Substance: RIFAXIMIN
     Dosage: 400 MG, THRICE DAILY
  5. ALBUMIN HUMAN [Concomitant]
     Active Substance: ALBUMIN HUMAN
     Dosage: ACCORDING TO RENAL FUNCTION AND CARDIOCIRCULATORY COMPENSATION
  6. CILASTATIN SODIUM (+) IMIPENEM [Suspect]
     Active Substance: CILASTATIN SODIUM\IMIPENEM
     Dosage: UNK
     Dates: start: 2017, end: 2017
  7. ENTECAVIR. [Concomitant]
     Active Substance: ENTECAVIR
     Dosage: 0.5 MG, ONCE DAILY
  8. PROPRANOLOL HYDROCHLORIDE. [Concomitant]
     Active Substance: PROPRANOLOL HYDROCHLORIDE
     Dosage: 20 MG, TWICE DAILY
  9. DARBEPOETIN ALFA [Concomitant]
     Active Substance: DARBEPOETIN ALFA
     Dosage: 4 MICROGRAM, 3 TIMES PER WEEK
  10. TRIMETON (CHLORPHENIRAMINE MALEATE) [Concomitant]
     Dosage: 10 MG, ONCE DAILY
  11. MORPHINE [Concomitant]
     Active Substance: MORPHINE
     Dosage: INCREASING DOSE IN THE LAST FEW DAYS
  12. FUROSEMIDE. [Concomitant]
     Active Substance: FUROSEMIDE
     Dosage: ACCORDING TO RENAL FUNCTION AND CARDIOCIRCULATORY COMPENSATION
  13. TRAMADOL HYDROCHLORIDE. [Concomitant]
     Active Substance: TRAMADOL HYDROCHLORIDE
     Dosage: 50 MG, TWICE DAILY
  14. THERAPY UNSPECIFIED [Suspect]
     Active Substance: UNSPECIFIED INGREDIENT
     Dosage: UNK
  15. CILASTATIN SODIUM (+) IMIPENEM [Suspect]
     Active Substance: CILASTATIN SODIUM\IMIPENEM
     Indication: ANTIBIOTIC THERAPY
     Dosage: 500 MG, THREE TIME A DAY
  16. LINEZOLID. [Concomitant]
     Active Substance: LINEZOLID
     Indication: PNEUMONIA
     Dosage: 600 MG, TWICE DAILY
     Dates: start: 2017, end: 2017
  17. FOLIC ACID. [Concomitant]
     Active Substance: FOLIC ACID
     Dosage: 5 MG, ONCE DAILY
  18. LACTULOSE. [Concomitant]
     Active Substance: LACTULOSE
     Dosage: SIX TABLESPOONS DAILY
     Route: 048
  19. PIPERACILLIN AND TAZOBACTAM [Concomitant]
     Active Substance: PIPERACILLIN SODIUM\TAZOBACTAM SODIUM
     Indication: PNEUMONIA
     Dosage: 2.25 MG FOUR TIMES A DAY
     Dates: start: 2017, end: 2017
  20. RABEPRAZOLE SODIUM. [Concomitant]
     Active Substance: RABEPRAZOLE SODIUM
     Dosage: 20 MG, ONCE DAILY
  21. TERLIPRESSIN [Concomitant]
     Active Substance: TERLIPRESSIN
     Dosage: ACCORDING TO RENAL FUNCTION
  22. OXYGEN. [Concomitant]
     Active Substance: OXYGEN
     Indication: PNEUMONIA
     Dosage: UNK
     Dates: start: 2017, end: 2017

REACTIONS (1)
  - Drug ineffective [Unknown]

NARRATIVE: CASE EVENT DATE: 2017
